FAERS Safety Report 7757809 (Version 9)
Quarter: 2013Q2

REPORT INFORMATION
  Report Type: Spontaneous
  Country: CA (occurrence: CA)
  Receive Date: 20110112
  Receipt Date: 20130626
  Transmission Date: 20140414
  Serious: Yes (Other)
  Sender: FDA-Public Use
  Company Number: CA-ROCHE-GNE311972

PATIENT
  Age: 44 Year
  Sex: Male

DRUGS (5)
  1. XOLAIR [Suspect]
     Indication: ASTHMA
     Route: 058
     Dates: start: 20100519
  2. ADVAIR [Concomitant]
  3. ALVESCO [Concomitant]
     Indication: PRODUCT USED FOR UNKNOWN INDICATION
  4. SINGULAIR [Concomitant]
     Indication: PRODUCT USED FOR UNKNOWN INDICATION
  5. PREDNISONE [Concomitant]

REACTIONS (7)
  - Pneumonia [Unknown]
  - Bronchitis [Unknown]
  - Asthma [Recovered/Resolved]
  - Wheezing [Unknown]
  - Sinusitis [Unknown]
  - Viral infection [Unknown]
  - Nasopharyngitis [Unknown]
